FAERS Safety Report 7801559-4 (Version None)
Quarter: 2011Q4

REPORT INFORMATION
  Report Type: 
  Country: None (occurrence: None)
  Receive Date: 20111005
  Receipt Date: 20110919
  Transmission Date: 20120403
  Serious: Yes (Hospitalization, Other)
  Sender: FDA-Public Use
  Company Number: JPI-P-005521

PATIENT
  Age: 76 Year
  Sex: Male
  Weight: 87.5442 kg

DRUGS (8)
  1. MODAFINIIL [Concomitant]
  2. VENLAFAXINE [Concomitant]
  3. XYREM [Suspect]
     Indication: CATAPLEXY
     Dosage: 5 GM (2.5 GM,2 IN 1 D),ORAL ; 7.5 GM (3.75 GM,2 IN 1 D),ORAL
     Route: 048
     Dates: start: 20080101
  4. XYREM [Suspect]
     Indication: CATAPLEXY
     Dosage: 5 GM (2.5 GM,2 IN 1 D),ORAL ; 7.5 GM (3.75 GM,2 IN 1 D),ORAL
     Route: 048
     Dates: start: 20070301
  5. ALLOPURINOL [Concomitant]
  6. METOPROLOL TARTRATE [Concomitant]
  7. LISINOPRIL [Concomitant]
  8. SIMVASTATIN [Concomitant]

REACTIONS (1)
  - ATRIAL FIBRILLATION [None]
